FAERS Safety Report 8932766 (Version 1)
Quarter: 2012Q4

REPORT INFORMATION
  Report Type: 
  Country: ES (occurrence: ES)
  Receive Date: 20121128
  Receipt Date: 20121128
  Transmission Date: 20130627
  Serious: Yes (Hospitalization)
  Sender: FDA-Public Use
  Company Number: ES-UCBSA-071425

PATIENT
  Age: 61 Year
  Sex: Female

DRUGS (1)
  1. KEPPRA [Suspect]
     Indication: EPILEPSY
     Dosage: STRENGTH: 1000 MG; DAILY DOSE: 2 G
     Route: 048
     Dates: start: 20120810, end: 20120916

REACTIONS (1)
  - Pancytopenia [Recovered/Resolved]
